FAERS Safety Report 15067202 (Version 2)
Quarter: 2018Q3

REPORT INFORMATION
  Report Type: Spontaneous
  Country: CN (occurrence: CN)
  Receive Date: 20180626
  Receipt Date: 20180709
  Transmission Date: 20181010
  Serious: Yes (Other)
  Sender: FDA-Public Use
  Company Number: CN-ABBVIE-18P-035-2400692-00

PATIENT

DRUGS (2)
  1. LIPANTHYL [Suspect]
     Active Substance: FENOFIBRATE
     Dosage: THE HEART DISCOMFORT WOULD RELIEVE IF THE PATIENT TOOK IF EVERY OTHER DAY
     Route: 065
  2. LIPANTHYL [Suspect]
     Active Substance: FENOFIBRATE
     Indication: PRODUCT USED FOR UNKNOWN INDICATION
     Dosage: PATIENT TOOK LIPANTHYL EVERY NIGHT
     Route: 065

REACTIONS (2)
  - Cardiac discomfort [Unknown]
  - Atrial fibrillation [Unknown]
